FAERS Safety Report 10375883 (Version 2)
Quarter: 2014Q3

REPORT INFORMATION
  Report Type: Spontaneous
  Country: US (occurrence: US)
  Receive Date: 20140811
  Receipt Date: 20140910
  Transmission Date: 20150326
  Serious: No
  Sender: FDA-Public Use
  Company Number: US-BAXTER-2014BAX042834

PATIENT
  Age: 65 Year
  Sex: Male
  Weight: 69.2 kg

DRUGS (2)
  1. DIANEAL LOW CALCIUM PERITONEAL DIALYSIS SOLUTION WITH DEXTROSE [Suspect]
     Active Substance: CALCIUM CHLORIDE\DEXTROSE\MAGNESIUM CHLORIDE\SODIUM CHLORIDE\SODIUM LACTATE
     Indication: PERITONEAL DIALYSIS
     Route: 033
  2. EXSEPT [Suspect]
     Active Substance: SODIUM HYPOCHLORITE
     Indication: PRODUCT USED FOR UNKNOWN INDICATION

REACTIONS (2)
  - Catheter site rash [Unknown]
  - Drug hypersensitivity [Recovered/Resolved]
